FAERS Safety Report 6333175-8 (Version None)
Quarter: 2009Q3

REPORT INFORMATION
  Report Type: 
  Country: None (occurrence: None)
  Receive Date: 20090828
  Receipt Date: 20090820
  Transmission Date: 20100115
  Serious: Yes (Other)
  Sender: FDA-Public Use
  Company Number: US-ROCHE-459826

PATIENT
  Sex: Female
  Weight: 68 kg

DRUGS (3)
  1. BONIVA [Suspect]
     Indication: OSTEOPENIA
     Route: 048
     Dates: start: 20060801, end: 20060803
  2. VICODIN [Concomitant]
  3. SYNTHROID [Concomitant]

REACTIONS (6)
  - BONE PAIN [None]
  - EYE IRRITATION [None]
  - FEELING ABNORMAL [None]
  - GAIT DISTURBANCE [None]
  - INFLUENZA LIKE ILLNESS [None]
  - MENTAL IMPAIRMENT [None]
